FAERS Safety Report 9653153 (Version 1)
Quarter: 2013Q4

REPORT INFORMATION
  Report Type: Spontaneous
  Country: US (occurrence: None)
  Receive Date: 20131028
  Receipt Date: 20131028
  Transmission Date: 20140711
  Serious: Yes (Other)
  Sender: FDA-Public Use
  Company Number: NSR_01304_2013

PATIENT
  Sex: 0

DRUGS (1)
  1. CLONIDINE [Suspect]
     Indication: PRODUCT USED FOR UNKNOWN INDICATION
     Dosage: (REPORTEDLY TOOK 4-6 TABLETS [NOT THE PRESCRIBED DOSE] )

REACTIONS (4)
  - Tremor [None]
  - Dizziness [None]
  - Somnolence [None]
  - Sensation of heaviness [None]
